FAERS Safety Report 8143141-8 (Version None)
Quarter: 2012Q1

REPORT INFORMATION
  Report Type: 
  Country: None (occurrence: None)
  Receive Date: 20120217
  Receipt Date: 20120213
  Transmission Date: 20120608
  Serious: No
  Sender: FDA-Public Use
  Company Number: US-PFIZER INC-2012039001

PATIENT
  Sex: Male

DRUGS (2)
  1. GEODON [Suspect]
     Indication: SCHIZOPHRENIA
     Dosage: 80 MG, 2X/DAY
     Route: 048
     Dates: start: 20111112, end: 20120209
  2. GEODON [Suspect]
     Dosage: 160 MG, 1X/DAY
     Route: 048
     Dates: start: 20120209, end: 20120201

REACTIONS (2)
  - FATIGUE [None]
  - VOMITING [None]
